FAERS Safety Report 9429174 (Version 4)
Quarter: 2013Q3

REPORT INFORMATION
  Report Type: Spontaneous
  Country: JP (occurrence: JP)
  Receive Date: 20130730
  Receipt Date: 20130930
  Transmission Date: 20140515
  Serious: No
  Sender: FDA-Public Use
  Company Number: JP-ELI_LILLY_AND_COMPANY-JP201307007567

PATIENT
  Sex: Male

DRUGS (2)
  1. CYMBALTA [Suspect]
     Indication: DEPRESSION
     Dosage: 20 MG, QD
     Route: 048
     Dates: start: 20130525
  2. TAKEPRON [Suspect]
     Dosage: UNK
     Route: 048
     Dates: end: 20130621

REACTIONS (1)
  - Gamma-glutamyltransferase increased [Not Recovered/Not Resolved]
